FAERS Safety Report 11205838 (Version 3)
Quarter: 2015Q3

REPORT INFORMATION
  Report Type: Report from Study
  Country: DE (occurrence: DE)
  Receive Date: 20150622
  Receipt Date: 20150811
  Transmission Date: 20151125
  Serious: Yes (Death, Hospitalization)
  Sender: FDA-Public Use
  Company Number: DE-CELGENE-DEU-2015061365

PATIENT
  Age: 65 Year
  Sex: Male
  Weight: 83 kg

DRUGS (7)
  1. KEVATRIL [Suspect]
     Active Substance: GRANISETRON HYDROCHLORIDE
     Route: 048
     Dates: start: 20150518, end: 20150526
  2. ROMIDEPSIN [Suspect]
     Active Substance: ROMIDEPSIN
     Indication: ACUTE MYELOID LEUKAEMIA
     Dosage: 1.4286 MILLIGRAM
     Route: 041
     Dates: start: 20150518, end: 20150526
  3. EMEND [Concomitant]
     Active Substance: APREPITANT
     Indication: ANTIEMETIC SUPPORTIVE CARE
     Dosage: 125/80 MG
     Route: 048
     Dates: start: 20150518
  4. AZACITIDINE INJECTABLE [Suspect]
     Active Substance: AZACITIDINE
     Indication: ACUTE MYELOID LEUKAEMIA
     Dosage: 28.5714 MILLIGRAM
     Route: 058
     Dates: start: 20150511, end: 20150515
  5. KEVATRIL [Suspect]
     Active Substance: GRANISETRON HYDROCHLORIDE
     Route: 048
     Dates: start: 20150526, end: 20150526
  6. KEVATRIL [Suspect]
     Active Substance: GRANISETRON HYDROCHLORIDE
     Indication: ANTIEMETIC SUPPORTIVE CARE
     Route: 048
     Dates: start: 20150511, end: 20150515
  7. EMEND [Concomitant]
     Active Substance: APREPITANT
     Dosage: 125/80 MG
     Route: 048
     Dates: start: 20150526

REACTIONS (2)
  - Sepsis [Fatal]
  - Intestinal ischaemia [Fatal]

NARRATIVE: CASE EVENT DATE: 20150531
